FAERS Safety Report 18584342 (Version 1)
Quarter: 2020Q4

REPORT INFORMATION
  Report Type: Spontaneous
  Country: US (occurrence: US)
  Receive Date: 20201207
  Receipt Date: 20201207
  Transmission Date: 20210114
  Serious: No
  Sender: FDA-Public Use
  Company Number: US-GW PHARMA-202011USGW04184

PATIENT

DRUGS (5)
  1. ONFI [Interacting]
     Active Substance: CLOBAZAM
     Indication: PRODUCT USED FOR UNKNOWN INDICATION
     Dosage: 10 MILLIGRAM, BID
     Route: 048
     Dates: end: 20201126
  2. EPIDIOLEX [Suspect]
     Active Substance: CANNABIDIOL
     Indication: EPILEPSY
     Dosage: 150 MILLIGRAM, BID
     Route: 048
     Dates: start: 202009, end: 2020
  3. ONFI [Interacting]
     Active Substance: CLOBAZAM
     Dosage: 5 MILLIGRAM, BID
     Route: 048
     Dates: start: 20201127
  4. EPIDIOLEX [Interacting]
     Active Substance: CANNABIDIOL
     Dosage: 300 MILLIGRAM, BID
     Route: 048
     Dates: start: 2020, end: 2020
  5. EPIDIOLEX [Interacting]
     Active Substance: CANNABIDIOL
     Dosage: 450 MILLIGRAM, BID
     Route: 048
     Dates: start: 2020

REACTIONS (4)
  - Drug interaction [Unknown]
  - Insomnia [Unknown]
  - Dyskinesia [Unknown]
  - Condition aggravated [Unknown]

NARRATIVE: CASE EVENT DATE: 2020
